FAERS Safety Report 5862897-8 (Version None)
Quarter: 2008Q3

REPORT INFORMATION
  Report Type: 
  Country: None (occurrence: None)
  Receive Date: 20080828
  Receipt Date: 20080820
  Transmission Date: 20090109
  Serious: Yes (Life-Threatening, Hospitalization, Disabling, Other)
  Sender: FDA-Public Use
  Company Number: A0738434A

PATIENT
  Age: 34 Year
  Sex: Female
  Weight: 50.9 kg

DRUGS (2)
  1. LAMICTAL [Suspect]
     Indication: EPILEPSY
     Route: 048
     Dates: start: 20040101
  2. BUSPAR [Concomitant]

REACTIONS (3)
  - ALCOHOL USE [None]
  - COMA [None]
  - INTENTIONAL OVERDOSE [None]
